FAERS Safety Report 7077899-6 (Version None)
Quarter: 2010Q4

REPORT INFORMATION
  Report Type: 
  Country: None (occurrence: None)
  Receive Date: 20101101
  Receipt Date: 20101019
  Transmission Date: 20110411
  Serious: Yes (Other)
  Sender: FDA-Public Use
  Company Number: GR-ELI_LILLY_AND_COMPANY-GR201010004311

PATIENT
  Age: 30 Year
  Sex: Male

DRUGS (6)
  1. ZYPADHERA [Suspect]
     Indication: IRRITABILITY
     Dosage: 300 MG, MONTHLY (1/M)
     Route: 030
     Dates: start: 20100201
  2. ZYPREXA [Suspect]
     Indication: IRRITABILITY
     Dosage: 10 MG, DAILY (1/D)
     Route: 048
  3. ALOPERIDIN [Concomitant]
     Indication: IRRITABILITY
     Dosage: UNK UNK, DAILY (1/D)
     Route: 048
  4. NOZINAN [Concomitant]
     Indication: IRRITABILITY
     Dosage: UNK UNK, DAILY (1/D)
     Route: 048
  5. DEPAKENE [Concomitant]
     Indication: IRRITABILITY
     Dosage: 500 MG, 4/D
     Route: 048
  6. NEURONTIN [Concomitant]
     Indication: IRRITABILITY
     Dosage: UNK UNK, DAILY (1/D)
     Route: 048

REACTIONS (2)
  - AGGRESSION [None]
  - IRRITABILITY [None]
